FAERS Safety Report 13654695 (Version 1)
Quarter: 2017Q2

REPORT INFORMATION
  Report Type: Spontaneous
  Country: FR (occurrence: FR)
  Receive Date: 20170615
  Receipt Date: 20170615
  Transmission Date: 20170830
  Serious: Yes (Hospitalization)
  Sender: FDA-Public Use
  Company Number: FR-ASTRAZENECA-2017SE61619

PATIENT
  Age: 21768 Day
  Sex: Female

DRUGS (10)
  1. TRIHEXYPHENIDYL [Concomitant]
     Active Substance: TRIHEXYPHENIDYL
  2. XEROQUEL [Suspect]
     Active Substance: QUETIAPINE FUMARATE
     Indication: SCHIZOPHRENIA
     Route: 048
     Dates: start: 20120801, end: 20120820
  3. ART 50 [Concomitant]
     Active Substance: DIACEREIN
  4. LOXAPINE. [Concomitant]
     Active Substance: LOXAPINE
  5. HEPTAMINOL [Concomitant]
     Active Substance: HEPTAMINOL
  6. RABEPRAZOLE [Concomitant]
     Active Substance: RABEPRAZOLE
  7. LAMALINE [Concomitant]
     Active Substance: ACETAMINOPHEN\CAFFEINE\OPIUM
  8. GAVISCON [Concomitant]
     Active Substance: ALUMINUM HYDROXIDE\MAGNESIUM CARBONATE
  9. DAFLON [Concomitant]
     Active Substance: DIOSMIN\HESPERIDIN
  10. ALPRAZOLAM. [Concomitant]
     Active Substance: ALPRAZOLAM

REACTIONS (2)
  - Impulse-control disorder [Recovered/Resolved]
  - Phobia [Recovered/Resolved]

NARRATIVE: CASE EVENT DATE: 20120817
